FAERS Safety Report 8454053-4 (Version None)
Quarter: 2012Q2

REPORT INFORMATION
  Report Type: 
  Country: None (occurrence: None)
  Receive Date: 20120620
  Receipt Date: 20120618
  Transmission Date: 20120825
  Serious: Yes (Other)
  Sender: FDA-Public Use
  Company Number: US-PFIZER INC-2012130560

PATIENT
  Sex: Female
  Weight: 103 kg

DRUGS (15)
  1. COLCHICINE W/PROBENECID [Concomitant]
     Dosage: UNK
  2. METFORMIN [Concomitant]
     Dosage: UNK
  3. MECLIZINE [Concomitant]
     Dosage: UNK
  4. CELEBREX [Suspect]
     Indication: OSTEOARTHRITIS
     Dosage: 200 MG, 2X/DAY
     Route: 048
     Dates: start: 20090101, end: 20120524
  5. HOMATROPINE METHYLBROMIDE/HYDROCODONE BITARTRATE [Concomitant]
     Dosage: UNK
  6. AMILORIDE HCL AND HYDROCHLOROTHIAZIDE [Concomitant]
     Dosage: UNK
  7. KLOR-CON [Concomitant]
     Dosage: UNK
  8. NEURONTIN [Concomitant]
     Dosage: UNK
  9. LISINOPRIL [Concomitant]
     Dosage: UNK
  10. NEXIUM [Concomitant]
     Dosage: UNK
  11. FLEXERIL [Concomitant]
     Dosage: 10 MG, UNK
  12. SYMBICORT [Concomitant]
     Dosage: UNK
  13. CELEXA [Concomitant]
     Dosage: UNK
  14. SYNTHROID [Concomitant]
     Dosage: UNK
  15. ALLOPURINOL [Concomitant]
     Dosage: UNK

REACTIONS (5)
  - BRAIN NEOPLASM MALIGNANT [None]
  - DISCOMFORT [None]
  - CRYING [None]
  - FEELING ABNORMAL [None]
  - BRAIN NEOPLASM [None]
